FAERS Safety Report 7812639-1 (Version None)
Quarter: 2011Q4

REPORT INFORMATION
  Report Type: 
  Country: None (occurrence: None)
  Receive Date: 20111013
  Receipt Date: 20110930
  Transmission Date: 20120403
  Serious: Yes (Hospitalization)
  Sender: FDA-Public Use
  Company Number: US-BAYER-2011-014990

PATIENT
  Age: 33 Year
  Sex: Female
  Weight: 54.422 kg

DRUGS (11)
  1. YAZ [Suspect]
     Indication: ACNE
     Dosage: UNK
     Dates: start: 20080501, end: 20100701
  2. SPIRONOLACTONE [Concomitant]
     Indication: ACNE
     Dosage: UNK
     Dates: start: 20091214
  3. DOXYCYCLINE [Concomitant]
     Indication: ACNE
     Dosage: 100 MG, BID
     Route: 048
     Dates: start: 20100101
  4. VICODIN [Concomitant]
     Dosage: UNK UNK, PRN
     Route: 048
     Dates: start: 20100201
  5. FLUOXETINE [Concomitant]
     Indication: DEPRESSION
     Dosage: UNK
  6. CITALOPRAM [Concomitant]
     Indication: DEPRESSION
     Dosage: 20 MG, QD
     Route: 048
     Dates: start: 20100101
  7. PRILOSEC [Concomitant]
     Dosage: 40 MG, QD
     Route: 048
     Dates: start: 20100201
  8. BENZACLIN TOPICAL [Concomitant]
     Indication: ACNE
     Dosage: UNK
     Route: 061
     Dates: start: 20091116
  9. PENLAC [Concomitant]
     Dosage: UNK
     Route: 061
     Dates: start: 20091116
  10. PAXIL [Concomitant]
     Indication: DEPRESSION
     Dosage: 10 MG, QD
     Route: 048
     Dates: start: 20100101, end: 20100201
  11. TRETINOIN [Concomitant]
     Indication: ACNE
     Dosage: UNK
     Route: 061
     Dates: start: 20091116

REACTIONS (4)
  - INJURY [None]
  - CHOLECYSTITIS [None]
  - PAIN [None]
  - CHOLELITHIASIS [None]
